FAERS Safety Report 8404770-7 (Version None)
Quarter: 2012Q2

REPORT INFORMATION
  Report Type: 
  Country: None (occurrence: None)
  Receive Date: 20120601
  Receipt Date: 20120521
  Transmission Date: 20120825
  Serious: No
  Sender: FDA-Public Use
  Company Number: US-ASTRAZENECA-2012SE32854

PATIENT
  Sex: Male

DRUGS (3)
  1. CITALOPRAM HYDROBROMIDE [Concomitant]
  2. SEROQUEL XR [Concomitant]
  3. SEROQUEL [Suspect]
     Route: 048

REACTIONS (1)
  - ADVERSE EVENT [None]
